FAERS Safety Report 21861525 (Version 7)
Quarter: 2024Q1

REPORT INFORMATION
  Report Type: Spontaneous
  Country: US (occurrence: US)
  Receive Date: 20230113
  Receipt Date: 20240131
  Transmission Date: 20240409
  Serious: No
  Sender: FDA-Public Use
  Company Number: US-PFIZER INC-PV202200085501

PATIENT
  Age: 72 Year
  Sex: Male

DRUGS (2)
  1. EUCRISA [Suspect]
     Active Substance: CRISABOROLE
     Dosage: APPLY TO THE AFFECTED AREA TWICE DAILY AS NEEDED
  2. EUCRISA [Suspect]
     Active Substance: CRISABOROLE
     Dosage: APPLY TOPICALLY QD (ONCE A DAY) PRN (AS NEEDED)
     Route: 061

REACTIONS (1)
  - Hypoacusis [Unknown]
